FAERS Safety Report 17464765 (Version 1)
Quarter: 2020Q3

REPORT INFORMATION
  Report Type: Spontaneous
  Country: US (occurrence: US)
  Receive Date: 20200226
  Receipt Date: 20200226
  Transmission Date: 20201105
  Serious: No
  Sender: FDA-Public Use
  Company Number: US-ROCHE-2457604

PATIENT
  Age: 10 Year
  Sex: Male

DRUGS (2)
  1. ALECTINIB. [Suspect]
     Active Substance: ALECTINIB
     Indication: MEDULLARY THYROID CANCER
     Route: 048
  2. CRIZOTINIB [Concomitant]
     Active Substance: CRIZOTINIB
     Route: 065

REACTIONS (1)
  - Myalgia [Unknown]
